FAERS Safety Report 8340248-7 (Version None)
Quarter: 2012Q2

REPORT INFORMATION
  Report Type: 
  Country: None (occurrence: None)
  Receive Date: 20120507
  Receipt Date: 20120419
  Transmission Date: 20120825
  Serious: Yes (Other)
  Sender: FDA-Public Use
  Company Number: CHPA2012US009721

PATIENT
  Age: 63 Year
  Sex: Male

DRUGS (3)
  1. PERDIEM OVERNIGHT RELIEF PILLS [Suspect]
     Dosage: 1 TO 3 DF, UNK
  2. PERDIEM FIBER [Suspect]
     Dosage: 3 TSP, DAILY
     Route: 048
  3. ALLERGY MEDICATION [Concomitant]
     Indication: HYPERSENSITIVITY
     Dosage: UNK, UNK

REACTIONS (11)
  - VIOLENCE-RELATED SYMPTOM [None]
  - BLOOD TESTOSTERONE ABNORMAL [None]
  - LUNG NEOPLASM [None]
  - DEPRESSION [None]
  - HEPATIC STEATOSIS [None]
  - OSTEOARTHRITIS [None]
  - MIGRAINE [None]
  - BLOOD PRESSURE FLUCTUATION [None]
  - INTERVERTEBRAL DISC PROTRUSION [None]
  - ALOPECIA [None]
  - WEIGHT INCREASED [None]
